FAERS Safety Report 19093159 (Version 5)
Quarter: 2022Q3

REPORT INFORMATION
  Report Type: Report from Study
  Country: CA (occurrence: CA)
  Receive Date: 20210405
  Receipt Date: 20220923
  Transmission Date: 20221027
  Serious: Yes (Hospitalization, Other)
  Sender: FDA-Public Use
  Company Number: CA-MYLANLABS-2021M1019800

PATIENT
  Sex: Female
  Weight: 96.8 kg

DRUGS (4)
  1. TRASTUZUMAB [Suspect]
     Active Substance: TRASTUZUMAB
     Indication: Breast cancer metastatic
     Dosage: 760 MILLIGRAM, Q3W
     Route: 042
     Dates: start: 20210303
  2. TRASTUZUMAB [Suspect]
     Active Substance: TRASTUZUMAB
     Dosage: 576 MILLIGRAM, Q3W
     Route: 042
     Dates: start: 20210305
  3. TUCATINIB [Suspect]
     Active Substance: TUCATINIB
     Indication: Product used for unknown indication
     Dosage: UNK
     Route: 065
  4. CAPECITABINE [Suspect]
     Active Substance: CAPECITABINE
     Indication: Product used for unknown indication
     Dosage: UNK
     Route: 065

REACTIONS (4)
  - Dehydration [Unknown]
  - Catheter site infection [Unknown]
  - Diarrhoea [Unknown]
  - Gastrointestinal toxicity [Unknown]
